FAERS Safety Report 4320677-9 (Version None)
Quarter: 2004Q1

REPORT INFORMATION
  Report Type: 
  Country: None (occurrence: None)
  Receive Date: 20040315
  Receipt Date: 20030516
  Transmission Date: 20041129
  Serious: Yes (Hospitalization, Other)
  Sender: FDA-Public Use
  Company Number: USA030537437

PATIENT
  Age: 56 Year
  Sex: Female

DRUGS (2)
  1. GEMZAR [Suspect]
     Indication: METASTASES TO LIVER
     Dosage: 1900 MG
     Dates: start: 20020902
  2. GEMZAR [Suspect]
     Indication: PANCREATIC CARCINOMA
     Dosage: 1900 MG
     Dates: start: 20020902

REACTIONS (6)
  - DYSPNOEA [None]
  - HAEMOLYTIC URAEMIC SYNDROME [None]
  - HEADACHE [None]
  - NAUSEA [None]
  - SKIN ULCER [None]
  - VOMITING [None]
